FAERS Safety Report 9385079 (Version 1)
Quarter: 2013Q3

REPORT INFORMATION
  Report Type: Spontaneous
  Country: IT (occurrence: IT)
  Receive Date: 20130705
  Receipt Date: 20130705
  Transmission Date: 20140515
  Serious: Yes (Hospitalization)
  Sender: FDA-Public Use
  Company Number: IT-NOVOPROD-381734

PATIENT
  Age: 83 Year
  Sex: Male

DRUGS (15)
  1. NOVONORM [Suspect]
     Indication: TYPE 2 DIABETES MELLITUS
     Dosage: 2 MG, UNK
     Route: 048
  2. LASIX /00032602/ [Suspect]
     Indication: HYPERTENSION
     Dosage: 150 MG, UNK
     Route: 048
  3. LASIX /00032602/ [Suspect]
     Dosage: 100 MG, UNK
     Route: 048
  4. TAREG [Suspect]
     Indication: HYPERTENSION
     Dosage: 1 TABLET
     Route: 065
  5. LEVEMIR FLEXPEN [Concomitant]
     Dosage: UNKNOWN
     Route: 065
  6. ACIDO ACETILSALICILICO [Concomitant]
  7. NORVASC [Concomitant]
  8. TRINIPLAS [Concomitant]
  9. DEURSIL [Concomitant]
  10. ASACOL [Concomitant]
  11. LANSOX [Concomitant]
  12. EUTIROX [Concomitant]
  13. EPREX [Concomitant]
  14. CONGESCOR [Concomitant]
  15. SIVASTIN [Concomitant]

REACTIONS (2)
  - Renal failure acute [Recovered/Resolved]
  - Overdose [None]
